FAERS Safety Report 5411485-6 (Version None)
Quarter: 2007Q3

REPORT INFORMATION
  Report Type: 
  Country: None (occurrence: None)
  Receive Date: 20070810
  Receipt Date: 20070731
  Transmission Date: 20080115
  Serious: Yes (Death, Hospitalization, Other)
  Sender: FDA-Public Use
  Company Number: US-SHR-US-2007-019775

PATIENT
  Age: 50 Year
  Sex: Male

DRUGS (1)
  1. BETASERON [Suspect]
     Dosage: 8 MIU, EVERY 2D
     Route: 058
     Dates: start: 20061014, end: 20070410

REACTIONS (7)
  - ABASIA [None]
  - LUNG NEOPLASM MALIGNANT [None]
  - PAIN IN EXTREMITY [None]
  - PULMONARY EMBOLISM [None]
  - SKIN DISCOLOURATION [None]
  - THROMBOSIS [None]
  - WEIGHT DECREASED [None]
